FAERS Safety Report 7296169-4 (Version None)
Quarter: 2011Q1

REPORT INFORMATION
  Report Type: 
  Country: None (occurrence: None)
  Receive Date: 20110216
  Receipt Date: 20110210
  Transmission Date: 20110831
  Serious: Yes (Hospitalization)
  Sender: FDA-Public Use
  Company Number: AU-PFIZER INC-2011021211

PATIENT
  Age: 51 Year
  Sex: Male

DRUGS (6)
  1. PARACETAMOL [Concomitant]
     Indication: PAIN
     Dosage: 1 G, AS NEEDED
     Route: 048
     Dates: start: 20110105
  2. SERTRALINE HYDROCHLORIDE [Concomitant]
     Indication: DEPRESSION
     Dosage: 50 MG, 1X/DAY
     Route: 048
     Dates: start: 20110105
  3. ZOPICLONE [Concomitant]
     Indication: INSOMNIA
     Dosage: 7.5 MG, 1X/DAY AT NIGHT
     Route: 048
     Dates: start: 20110127
  4. NEXIUM [Concomitant]
     Indication: REFLUX OESOPHAGITIS
     Dosage: 40 MG, AS NEEDED
     Route: 048
     Dates: start: 20091216
  5. COLOXYL WITH SENNA [Concomitant]
     Indication: CONSTIPATION
     Dosage: 1 TABLET DAILY
     Route: 048
     Dates: start: 20110127
  6. TEMSIROLIMUS [Suspect]
     Indication: METASTATIC RENAL CELL CARCINOMA
     Dosage: 25 MG, WEEKLY
     Route: 042
     Dates: start: 20091125

REACTIONS (1)
  - GENERAL PHYSICAL HEALTH DETERIORATION [None]
